FAERS Safety Report 4722606-2 (Version None)
Quarter: 2005Q3

REPORT INFORMATION
  Report Type: 
  Country: None (occurrence: None)
  Receive Date: 20050720
  Receipt Date: 20050711
  Transmission Date: 20060218
  Serious: Yes (Death)
  Sender: FDA-Public Use
  Company Number: 200511178BWH

PATIENT
  Age: 88 Year
  Sex: Female
  Weight: 51.7101 kg

DRUGS (13)
  1. AVELOX [Suspect]
     Indication: UPPER RESPIRATORY TRACT INFECTION
     Dosage: 400 MG, QD, ORAL
     Route: 048
     Dates: start: 20050512, end: 20050519
  2. ARICEPT [Concomitant]
  3. ASPIRIN [Concomitant]
  4. ATENOLOL [Concomitant]
  5. ALPHAGAN [Concomitant]
  6. DEPAKOTE [Concomitant]
  7. GABAPENTIN [Concomitant]
  8. PREVACID [Concomitant]
  9. SYNTHROID [Concomitant]
  10. TRAMADOL [Concomitant]
  11. ZOLOFT [Concomitant]
  12. MOM [Concomitant]
  13. ACETAMINOPHEN W/ PROPOXYPHENE HCL [Concomitant]

REACTIONS (5)
  - PETECHIAE [None]
  - SKIN DISCOLOURATION [None]
  - SKIN LACERATION [None]
  - SKIN WARM [None]
  - STEVENS-JOHNSON SYNDROME [None]
